FAERS Safety Report 18691091 (Version 3)
Quarter: 2021Q1

REPORT INFORMATION
  Report Type: Spontaneous
  Country: US (occurrence: US)
  Receive Date: 20210101
  Receipt Date: 20210326
  Transmission Date: 20210419
  Serious: No
  Sender: FDA-Public Use
  Company Number: US-ASTRAZENECA-2020SF65255

PATIENT
  Age: 32235 Day
  Sex: Female
  Weight: 54.4 kg

DRUGS (2)
  1. SYMBICORT [Suspect]
     Active Substance: BUDESONIDE\FORMOTEROL FUMARATE DIHYDRATE
     Indication: RESPIRATION ABNORMAL
     Dosage: 2 PUFFS TWICE A DAY
     Route: 055
  2. SPIRIVA [Concomitant]
     Active Substance: TIOTROPIUM BROMIDE MONOHYDRATE
     Indication: RESPIRATION ABNORMAL
     Dosage: 2 PUFFS DAILY

REACTIONS (4)
  - Fatigue [Unknown]
  - Product dose omission issue [Unknown]
  - Dyspnoea [Unknown]
  - Device delivery system issue [Unknown]

NARRATIVE: CASE EVENT DATE: 20201204
